FAERS Safety Report 18148201 (Version 2)
Quarter: 2020Q3

REPORT INFORMATION
  Report Type: Spontaneous
  Country: US (occurrence: US)
  Receive Date: 20200813
  Receipt Date: 20200914
  Transmission Date: 20201103
  Serious: No
  Sender: FDA-Public Use
  Company Number: US-JNJFOC-20200812104

PATIENT
  Age: 52 Year
  Sex: Male

DRUGS (4)
  1. TREMFYA [Suspect]
     Active Substance: GUSELKUMAB
     Indication: PRODUCT USED FOR UNKNOWN INDICATION
     Route: 065
  2. TREMFYA [Suspect]
     Active Substance: GUSELKUMAB
  3. HUMIRA [Suspect]
     Active Substance: ADALIMUMAB
     Indication: PRODUCT USED FOR UNKNOWN INDICATION
     Route: 058
  4. TREMFYA [Suspect]
     Active Substance: GUSELKUMAB

REACTIONS (4)
  - Peripheral swelling [Unknown]
  - Skin disorder [Unknown]
  - Condition aggravated [Unknown]
  - Drug ineffective [Unknown]
